FAERS Safety Report 15656309 (Version 1)
Quarter: 2018Q4

REPORT INFORMATION
  Report Type: Report from Study
  Country: GB (occurrence: GB)
  Receive Date: 20181126
  Receipt Date: 20181126
  Transmission Date: 20190205
  Serious: Yes (Hospitalization)
  Sender: FDA-Public Use
  Company Number: GB-JNJFOC-20181123287

PATIENT
  Age: 22 Year
  Sex: Female

DRUGS (2)
  1. CYCLOSPORIN [Suspect]
     Active Substance: CYCLOSPORINE
     Indication: PRODUCT USED FOR UNKNOWN INDICATION
     Route: 065
  2. STELARA [Suspect]
     Active Substance: USTEKINUMAB
     Indication: PSORIASIS
     Dosage: ON WEEK 0 AS DIRECTED
     Route: 058
     Dates: start: 201410

REACTIONS (5)
  - Adverse drug reaction [Unknown]
  - Erythrodermic psoriasis [Unknown]
  - Psoriasis [Unknown]
  - Blood bilirubin increased [Unknown]
  - Hepatitis [Unknown]

NARRATIVE: CASE EVENT DATE: 201810
